FAERS Safety Report 23629141 (Version 4)
Quarter: 2024Q3

REPORT INFORMATION
  Report Type: Spontaneous
  Country: JP (occurrence: JP)
  Receive Date: 20240313
  Receipt Date: 20240724
  Transmission Date: 20241016
  Serious: Yes (Hospitalization)
  Sender: EISAI
  Company Number: JP-Eisai-202315010_LEN_P_1

PATIENT
  Sex: Male
  Weight: 53 kg

DRUGS (2)
  1. LENVIMA [Suspect]
     Active Substance: LENVATINIB
     Indication: Papillary thyroid cancer
     Route: 048
     Dates: start: 20180215, end: 20231019
  2. LEVOTHYROXINE [Concomitant]
     Active Substance: LEVOTHYROXINE\LEVOTHYROXINE SODIUM
     Indication: Product used for unknown indication
     Dosage: DOSE AND FREQUENCY UNKNOWN.
     Route: 065

REACTIONS (2)
  - Myocardial infarction [Recovered/Resolved]
  - Arteriosclerosis coronary artery [Unknown]

NARRATIVE: CASE EVENT DATE: 20231019
